FAERS Safety Report 24905234 (Version 1)
Quarter: 2025Q1

REPORT INFORMATION
  Report Type: Spontaneous
  Country: US (occurrence: US)
  Receive Date: 20250130
  Receipt Date: 20250130
  Transmission Date: 20250409
  Serious: No
  Sender: PFIZER
  Company Number: US-PFIZER INC-PV202400111910

PATIENT
  Age: 80 Year
  Sex: Female

DRUGS (1)
  1. XELJANZ [Suspect]
     Active Substance: TOFACITINIB CITRATE

REACTIONS (4)
  - Product dose omission in error [Unknown]
  - Gastrointestinal disorder [Unknown]
  - Nausea [Unknown]
  - COVID-19 [Unknown]

NARRATIVE: CASE EVENT DATE: 20240801
